FAERS Safety Report 9519481 (Version 1)
Quarter: 2013Q3

REPORT INFORMATION
  Report Type: Spontaneous
  Country: US (occurrence: US)
  Receive Date: 20130912
  Receipt Date: 20130912
  Transmission Date: 20140515
  Serious: Yes (Other)
  Sender: FDA-Public Use
  Company Number: US-SHIRE-ALL1-2013-06169

PATIENT
  Age: 11 Year
  Sex: Female

DRUGS (2)
  1. VYVANSE [Suspect]
     Indication: ATTENTION DEFICIT/HYPERACTIVITY DISORDER
     Dosage: 30 MG, 1X/DAY:QD
     Route: 048
     Dates: start: 201308, end: 2013
  2. VYVANSE [Suspect]
     Dosage: UNK, UNKNOWN
     Route: 048
     Dates: end: 2013

REACTIONS (1)
  - Cardiac failure congestive [Recovered/Resolved]
